FAERS Safety Report 10071339 (Version 2)
Quarter: 2014Q2

REPORT INFORMATION
  Report Type: Spontaneous
  Country: US (occurrence: US)
  Receive Date: 20140410
  Receipt Date: 20140423
  Transmission Date: 20141212
  Serious: Yes (Hospitalization)
  Sender: FDA-Public Use
  Company Number: US-ACTELION-A-US2014-96930

PATIENT
  Age: 22 Year
  Sex: Female

DRUGS (4)
  1. VELETRI [Suspect]
     Indication: COR PULMONALE CHRONIC
     Dosage: 8 NG/KG, PER MIN
     Route: 042
     Dates: start: 20140317
  2. LETAIRIS [Concomitant]
  3. REVATIO [Concomitant]
  4. COUMADIN [Concomitant]

REACTIONS (2)
  - Transplant evaluation [Unknown]
  - Condition aggravated [Unknown]
